APPROVED DRUG PRODUCT: INCASSIA
Active Ingredient: NORETHINDRONE
Strength: 0.35MG
Dosage Form/Route: TABLET;ORAL-28
Application: A207304 | Product #001 | TE Code: AB1
Applicant: AUROBINDO PHARMA LTD
Approved: Sep 23, 2016 | RLD: No | RS: No | Type: RX